FAERS Safety Report 9996422 (Version 2)
Quarter: 2014Q3

REPORT INFORMATION
  Report Type: Spontaneous
  Country: US (occurrence: US)
  Receive Date: 20140311
  Receipt Date: 20140807
  Transmission Date: 20150326
  Serious: Yes (Hospitalization)
  Sender: FDA-Public Use
  Company Number: US-BAYER-2014-036274

PATIENT
  Age: 29 Year
  Sex: Female
  Weight: 111.11 kg

DRUGS (2)
  1. YAZ [Suspect]
     Active Substance: DROSPIRENONE\ETHINYL ESTRADIOL
     Dosage: UNK
     Dates: start: 2007
  2. YASMIN [Suspect]
     Active Substance: DROSPIRENONE\ETHINYL ESTRADIOL
     Dosage: UNK
     Dates: start: 2007

REACTIONS (10)
  - Injury [None]
  - Pain [None]
  - Anxiety [None]
  - General physical health deterioration [None]
  - Emotional distress [None]
  - Pulmonary embolism [None]
  - Obstructive airways disorder [None]
  - Palpitations [None]
  - Abdominal pain [None]
  - Dyspnoea [None]

NARRATIVE: CASE EVENT DATE: 20071104
